FAERS Safety Report 6266633-5 (Version None)
Quarter: 2009Q3

REPORT INFORMATION
  Report Type: 
  Country: None (occurrence: None)
  Receive Date: 20090710
  Receipt Date: 20090625
  Transmission Date: 20100115
  Serious: Yes (Death, Hospitalization)
  Sender: FDA-Public Use
  Company Number: 2009PV038509

PATIENT
  Age: 51 Year
  Sex: Female

DRUGS (1)
  1. SYMLIN [Suspect]
     Indication: TYPE 1 DIABETES MELLITUS
     Dosage: SC
     Route: 058
     Dates: start: 20081201, end: 20090101

REACTIONS (4)
  - GENERAL PHYSICAL HEALTH DETERIORATION [None]
  - INFLUENZA [None]
  - PYREXIA [None]
  - RESPIRATORY DISORDER [None]
